FAERS Safety Report 25983289 (Version 1)
Quarter: 2025Q4

REPORT INFORMATION
  Report Type: Spontaneous
  Country: GB (occurrence: GB)
  Receive Date: 20251031
  Receipt Date: 20251031
  Transmission Date: 20260118
  Serious: Yes (Other)
  Sender: MYLAN
  Company Number: None

PATIENT
  Age: 73 Year
  Sex: Female
  Weight: 78 kg

DRUGS (7)
  1. ATORVASTATIN [Suspect]
     Active Substance: ATORVASTATIN
     Indication: Disease risk factor
     Dosage: 20 MILLIGRAM
     Dates: start: 20250331, end: 20250407
  2. ROSUVASTATIN [Suspect]
     Active Substance: ROSUVASTATIN
     Indication: Disease risk factor
     Dosage: 5 MILLIGRAM
     Dates: start: 20250419, end: 20250522
  3. SIMVASTATIN [Suspect]
     Active Substance: SIMVASTATIN
     Indication: Disease risk factor
     Dosage: 10 MILLIGRAM, QD (DAILY)
     Dates: start: 20250603, end: 20250918
  4. EZETIMIBE [Suspect]
     Active Substance: EZETIMIBE
     Indication: Disease risk factor
     Dosage: 10 MILLIGRAM, QD (DAILY)
     Dates: start: 20251024, end: 20251027
  5. RAMIPRIL [Concomitant]
     Active Substance: RAMIPRIL
     Indication: Hypertension
     Dosage: UNK
  6. LERCANIDIPINE [Concomitant]
     Active Substance: LERCANIDIPINE
     Indication: Ill-defined disorder
     Dosage: UNK
  7. CITALOPRAM [Concomitant]
     Active Substance: CITALOPRAM
     Indication: Anxiety
     Dosage: UNK

REACTIONS (6)
  - Myalgia [Unknown]
  - Insomnia [Unknown]
  - Sleep disorder [Unknown]
  - Gait disturbance [Unknown]
  - Pain in extremity [Unknown]
  - Dizziness [Recovered/Resolved]

NARRATIVE: CASE EVENT DATE: 20250404
